FAERS Safety Report 6104351-4 (Version None)
Quarter: 2009Q1

REPORT INFORMATION
  Report Type: 
  Country: None (occurrence: None)
  Receive Date: 20090305
  Receipt Date: 20090217
  Transmission Date: 20090719
  Serious: Yes (Death, Hospitalization)
  Sender: FDA-Public Use
  Company Number: DE-PFIZER INC-2009154973

PATIENT

DRUGS (9)
  1. BLINDED *PLACEBO [Suspect]
     Indication: CARDIAC FAILURE
     Dosage: DAILY
     Route: 048
     Dates: start: 20080201, end: 20081221
  2. EPLERENONE [Suspect]
     Indication: CARDIAC FAILURE
     Dosage: DAILY
     Route: 048
     Dates: start: 20080201, end: 20081221
  3. ASPIRIN [Concomitant]
     Dosage: UNK
     Route: 048
     Dates: end: 20081221
  4. DIOVAN HCT [Concomitant]
     Dosage: UNK
     Route: 048
     Dates: end: 20081221
  5. BELOC-ZOK MITE [Concomitant]
     Dosage: UNK
     Route: 048
     Dates: end: 20081221
  6. ZOCOR [Concomitant]
     Dosage: UNK
     Route: 048
     Dates: end: 20081221
  7. METFORMIN [Concomitant]
     Dosage: UNK
     Route: 048
     Dates: end: 20081221
  8. ALLOPURINOL [Concomitant]
     Dosage: UNK
     Route: 048
     Dates: end: 20081221
  9. TORASEMIDE [Concomitant]
     Dosage: UNK
     Route: 048
     Dates: end: 20081221

REACTIONS (3)
  - CARDIAC FAILURE [None]
  - HYPONATRAEMIA [None]
  - MYOCARDIAL INFARCTION [None]
